FAERS Safety Report 4402340-9 (Version None)
Quarter: 2004Q3

REPORT INFORMATION
  Report Type: 
  Country: None (occurrence: None)
  Receive Date: 20040720
  Receipt Date: 20040708
  Transmission Date: 20050211
  Serious: Yes (Other)
  Sender: FDA-Public Use
  Company Number: JP-BRISTOL-MYERS SQUIBB COMPANY-12641791

PATIENT
  Age: 41 Year
  Sex: Male

DRUGS (6)
  1. EFAVIRENZ [Suspect]
     Indication: HIV INFECTION
     Route: 048
     Dates: start: 20011208
  2. DIDANOSINE [Suspect]
     Indication: HIV INFECTION
     Dosage: AS OF 17-APR-2001 AT 200 MG DAILY (QD)
     Route: 048
     Dates: start: 19920904, end: 20011207
  3. STAVUDINE [Suspect]
     Indication: HIV INFECTION
     Route: 048
     Dates: start: 20011208
  4. LAMIVUDINE [Suspect]
     Indication: HIV INFECTION
     Route: 048
     Dates: start: 20011208
  5. RITONAVIR [Suspect]
     Indication: HIV INFECTION
     Route: 048
     Dates: start: 19990123, end: 20011207
  6. KOGENATE [Concomitant]
     Indication: FACTOR VIII DEFICIENCY

REACTIONS (3)
  - HEPATIC FUNCTION ABNORMAL [None]
  - HYPERLIPIDAEMIA [None]
  - PANCYTOPENIA [None]
